FAERS Safety Report 20140963 (Version 1)
Quarter: 2021Q4

REPORT INFORMATION
  Report Type: Spontaneous
  Country: US (occurrence: US)
  Receive Date: 20211202
  Receipt Date: 20211202
  Transmission Date: 20220303
  Serious: No
  Sender: FDA-Public Use
  Company Number: US-009507513-2111USA001954

PATIENT
  Age: 79 Year
  Sex: Female

DRUGS (2)
  1. INVANZ [Suspect]
     Active Substance: ERTAPENEM SODIUM
     Indication: Escherichia sepsis
     Dosage: UNK
  2. INVANZ [Suspect]
     Active Substance: ERTAPENEM SODIUM
     Indication: Pneumonia staphylococcal

REACTIONS (1)
  - Product use in unapproved indication [Unknown]
